FAERS Safety Report 9229868 (Version 11)
Quarter: 2013Q4

REPORT INFORMATION
  Report Type: Report from Study
  Country: CA (occurrence: CA)
  Receive Date: 20130415
  Receipt Date: 20131025
  Transmission Date: 20140711
  Serious: Yes (Hospitalization, Other)
  Sender: FDA-Public Use
  Company Number: CA-009507513-1303CAN007720

PATIENT
  Age: 73 Year
  Sex: Female
  Weight: 100.7 kg

DRUGS (23)
  1. PLACEBO [Suspect]
     Indication: OVARIAN CANCER
     Dosage: 225 MG, UNK
     Route: 048
     Dates: start: 20130131, end: 20130202
  2. PLACEBO [Suspect]
     Dosage: 225 MG, UNK
     Route: 048
     Dates: start: 20130221, end: 20130223
  3. PLACEBO [Suspect]
     Dosage: 175 MG, UNK
     Route: 048
     Dates: start: 20130314
  4. CARBOPLATIN [Suspect]
     Indication: OVARIAN CANCER
     Dosage: 1667ML, ONCE
     Route: 042
     Dates: start: 20130131, end: 20130131
  5. CARBOPLATIN [Suspect]
     Dosage: 2500 ML ONCE
     Route: 042
     Dates: start: 20130221, end: 20130221
  6. PACLITAXEL [Suspect]
     Indication: OVARIAN CANCER
     Dosage: 220 ML, ONCE
     Route: 042
     Dates: start: 20130131, end: 20130131
  7. PACLITAXEL [Suspect]
     Dosage: 246 ML, ONCE
     Route: 042
     Dates: start: 20130221, end: 20130221
  8. LOSARTAN POTASSIUM [Suspect]
     Indication: HYPERTENSION
     Dosage: 20 MG, BID
     Route: 048
     Dates: start: 20130129, end: 20130228
  9. OMEPRAZOLE [Concomitant]
     Indication: REFLUX GASTRITIS
     Dosage: 20 MG, BID
     Route: 048
     Dates: start: 200501
  10. ZOPICLONE [Concomitant]
     Indication: INSOMNIA
     Dosage: TOTAL DAILY DOSE 3.75 MG, PRN
     Route: 048
     Dates: start: 201210
  11. ASCORBIC ACID [Concomitant]
     Indication: ROUTINE HEALTH MAINTENANCE
     Dosage: 1000 MG, QD
     Route: 048
     Dates: start: 200001
  12. VITAMIN E [Concomitant]
     Indication: ROUTINE HEALTH MAINTENANCE
     Dosage: 400 IU, QD
     Route: 048
     Dates: start: 201201
  13. VITAMIN D (UNSPECIFIED) [Concomitant]
     Indication: ROUTINE HEALTH MAINTENANCE
     Dosage: 1000 IU, QD
     Route: 048
     Dates: start: 201201
  14. VITAMINS (UNSPECIFIED) [Concomitant]
     Indication: ROUTINE HEALTH MAINTENANCE
     Dosage: 1 TABLET, QD
     Route: 048
     Dates: start: 200701
  15. VITAMIN B (UNSPECIFIED) [Concomitant]
     Indication: ROUTINE HEALTH MAINTENANCE
     Dosage: 602 MG, QD
     Route: 048
     Dates: start: 200701
  16. ZOFRAN [Concomitant]
     Indication: PROPHYLAXIS OF NAUSEA AND VOMITING
     Dosage: TOTAL DAILY DOSE 16 MG, PRN
     Route: 048
     Dates: start: 20130131, end: 20130516
  17. DEXAMETHASONE [Concomitant]
     Indication: CHEMOTHERAPY
     Dosage: TOTAL DAILY DOSE 8 MG, PRN
     Route: 048
     Dates: start: 20130201, end: 20130518
  18. RANITIDINE [Concomitant]
     Indication: PREMEDICATION
     Dosage: TOTAL DAILY DOSE 50MG, PRN
     Route: 042
     Dates: start: 20130131, end: 20130516
  19. OLANZAPINE [Concomitant]
     Indication: PROPHYLAXIS OF NAUSEA AND VOMITING
     Dosage: TOTOAL DAILY DOSE 5MG, PRN
     Route: 060
     Dates: start: 20130131, end: 20130516
  20. BENADRYL [Concomitant]
     Indication: PROPHYLAXIS
     Dosage: TOTAL DAILY DOSE 50MG, PRN
     Route: 042
     Dates: start: 20130131, end: 20130516
  21. DECADRON [Concomitant]
     Indication: PROPHYLAXIS
     Dosage: TOTAL DAILY DOSE 20MG, PRN
     Route: 042
     Dates: start: 20130131, end: 20130516
  22. TYLENOL ARTHRITIS PAIN [Concomitant]
     Indication: ARTHRALGIA
     Dosage: 650 MG, PRN
     Route: 048
     Dates: start: 201212
  23. LOPERAMIDE HYDROCHLORIDE [Concomitant]
     Indication: DIARRHOEA
     Dosage: 2 MG, PRN
     Route: 048
     Dates: start: 20130201, end: 20130611

REACTIONS (1)
  - Syncope [Recovered/Resolved]
